FAERS Safety Report 7628493-7 (Version None)
Quarter: 2011Q3

REPORT INFORMATION
  Report Type: 
  Country: None (occurrence: None)
  Receive Date: 20110705
  Receipt Date: 20110620
  Transmission Date: 20111222
  Serious: Yes (Other)
  Sender: FDA-Public Use
  Company Number: 2011029047

PATIENT
  Sex: Female

DRUGS (2)
  1. HIZENTRA [Suspect]
     Dosage: 83 ML 1X/WEEK, 2 HOURS IN 8 SITES SUBCUTANEOUS; SUBCUTANEOUS
     Route: 058
     Dates: start: 20110301
  2. HIZENTRA [Suspect]

REACTIONS (10)
  - INFUSION RELATED REACTION [None]
  - URINARY RETENTION [None]
  - FEELING ABNORMAL [None]
  - OEDEMA PERIPHERAL [None]
  - HEADACHE [None]
  - BACK PAIN [None]
  - HYPERVENTILATION [None]
  - PAIN IN EXTREMITY [None]
  - CHEST DISCOMFORT [None]
  - DYSPNOEA [None]
